FAERS Safety Report 6161638-7 (Version None)
Quarter: 2009Q2

REPORT INFORMATION
  Report Type: 
  Country: None (occurrence: None)
  Receive Date: 20090417
  Receipt Date: 20090409
  Transmission Date: 20091009
  Serious: Yes (Disabling)
  Sender: FDA-Public Use
  Company Number: APP200800736

PATIENT
  Age: 19 Year
  Sex: Male

DRUGS (6)
  1. BUPIVACAINE [Suspect]
     Indication: MUSCULOSKELETAL PAIN
     Dosage: INTRA-ARTICULAR
     Route: 014
     Dates: start: 20060307
  2. MARCAINE HYDROCHLORIDE W/ EPINEPHRINE [Suspect]
     Indication: MUSCULOSKELETAL PAIN
     Dosage: INTRA-ARTICULAR
     Route: 014
     Dates: start: 20060307, end: 20060307
  3. LIDOCAINE [Suspect]
     Indication: MUSCULOSKELETAL PAIN
     Dosage: INTRA-ARTICULAR
     Route: 014
     Dates: start: 20060307
  4. SORENSON MEDICAL PAIN PUMP [Suspect]
     Indication: MUSCULOSKELETAL PAIN
     Dates: start: 20060307
  5. XYLOCAINE [Concomitant]
  6. ANCEF [Concomitant]

REACTIONS (6)
  - BONE LESION [None]
  - CHONDROLYSIS [None]
  - FALL [None]
  - INJURY [None]
  - MUSCULOSKELETAL PAIN [None]
  - PAIN [None]
